FAERS Safety Report 5092328-X (Version None)
Quarter: 2006Q3

REPORT INFORMATION
  Report Type: 
  Country: None (occurrence: None)
  Receive Date: 20060825
  Receipt Date: 20060810
  Transmission Date: 20061208
  Serious: No
  Sender: FDA-Public Use
  Company Number: US200608002769

PATIENT
  Age: 56 Year
  Sex: Female

DRUGS (2)
  1. CYMBALTA [Suspect]
     Dosage: SEE IMAGE
  2. PHENOBARBITAL TAB [Concomitant]

REACTIONS (2)
  - ALANINE AMINOTRANSFERASE INCREASED [None]
  - ASPARTATE AMINOTRANSFERASE INCREASED [None]
